FAERS Safety Report 10135008 (Version 1)
Quarter: 2014Q2

REPORT INFORMATION
  Report Type: Spontaneous
  Country: US (occurrence: US)
  Receive Date: 20140428
  Receipt Date: 20140428
  Transmission Date: 20141212
  Serious: Yes (Other)
  Sender: FDA-Public Use
  Company Number: US-BAXTER-2014BAX019853

PATIENT
  Age: 2 Year
  Sex: Female

DRUGS (4)
  1. GAMMAGARD LIQUID [Suspect]
     Indication: INFECTION
     Route: 042
  2. GAMMAGARD LIQUID [Suspect]
     Indication: HYPOGAMMAGLOBULINAEMIA
  3. PALIVIZUMAB [Suspect]
     Indication: IMMUNE TOLERANCE INDUCTION
     Route: 065
  4. PNEUMOCOCCAL VACCINE [Suspect]
     Indication: IMMUNISATION
     Route: 065

REACTIONS (1)
  - Anaphylactoid reaction [Recovered/Resolved]
